FAERS Safety Report 8618885-1 (Version None)
Quarter: 2012Q3

REPORT INFORMATION
  Report Type: 
  Country: None (occurrence: None)
  Receive Date: 20120816
  Receipt Date: 20120816
  Transmission Date: 20120928
  Serious: Yes (Hospitalization)
  Sender: FDA-Public Use
  Company Number: None

PATIENT
  Age: 58 Year
  Sex: Female
  Weight: 68 kg

DRUGS (9)
  1. PREGABALIN [Concomitant]
  2. CITALOPRAM HYDROBROMIDE [Concomitant]
  3. ARIPIPRAZOLE [Concomitant]
  4. DICLOFENAC SODIUM [Suspect]
     Indication: PAIN
     Dosage: 50 MG BID PO
     Route: 048
  5. OXYCODONE HCL EXTENDED-RELEASE [Concomitant]
  6. HYDROCODONE BITARTRATE + ACETAMINOPHEN [Concomitant]
  7. TRAZODONE HYDROCHLORIDE [Concomitant]
  8. ALPRAZOLAM [Concomitant]
  9. TOPIRAMATE [Concomitant]

REACTIONS (8)
  - HYPOTENSION [None]
  - ABDOMINAL PAIN UPPER [None]
  - GASTRIC HAEMORRHAGE [None]
  - FAECES DISCOLOURED [None]
  - DIZZINESS [None]
  - HAEMOGLOBIN DECREASED [None]
  - GASTRIC ULCER [None]
  - THROMBOSIS [None]
